FAERS Safety Report 16954567 (Version 1)
Quarter: 2019Q4

REPORT INFORMATION
  Report Type: Spontaneous
  Country: US (occurrence: US)
  Receive Date: 20191023
  Receipt Date: 20191023
  Transmission Date: 20200122
  Serious: No
  Sender: FDA-Public Use
  Company Number: US-SHIRE-US201936117

PATIENT
  Sex: Male
  Weight: 63.04 kg

DRUGS (1)
  1. GATTEX [Suspect]
     Active Substance: TEDUGLUTIDE\WATER
     Indication: PRODUCT USED FOR UNKNOWN INDICATION
     Dosage: 0.3600 (UNIT UNKNOWN)
     Route: 058
     Dates: start: 20190222

REACTIONS (2)
  - Weight decreased [Not Recovered/Not Resolved]
  - Stoma complication [Not Recovered/Not Resolved]
